FAERS Safety Report 15493672 (Version 1)
Quarter: 2018Q4

REPORT INFORMATION
  Report Type: Spontaneous
  Country: AU (occurrence: US)
  Receive Date: 20181012
  Receipt Date: 20181012
  Transmission Date: 20190205
  Serious: Yes (Life-Threatening, Hospitalization)
  Sender: FDA-Public Use
  Company Number: None

PATIENT
  Age: 34 Year
  Sex: Female
  Weight: 50 kg

DRUGS (6)
  1. VT C [Concomitant]
  2. VITAMIN B12 [Concomitant]
     Active Substance: CYANOCOBALAMIN
  3. DIGESTIVE ENZYMES [Concomitant]
     Active Substance: UNSPECIFIED INGREDIENT
  4. IRON [Concomitant]
     Active Substance: IRON
  5. MIRENA [Suspect]
     Active Substance: LEVONORGESTREL
  6. VT D [Concomitant]

REACTIONS (7)
  - Blood pressure decreased [None]
  - Dizziness [None]
  - Abdominal pain [None]
  - Hydrometra [None]
  - Fallopian tube disorder [None]
  - Mass [None]
  - Haemoglobin decreased [None]

NARRATIVE: CASE EVENT DATE: 20181002
